FAERS Safety Report 8532672-4 (Version None)
Quarter: 2012Q3

REPORT INFORMATION
  Report Type: 
  Country: None (occurrence: None)
  Receive Date: 20120711
  Receipt Date: 20110726
  Transmission Date: 20120928
  Serious: No
  Sender: FDA-Public Use
  Company Number: PP11-019

PATIENT
  Sex: Male

DRUGS (1)
  1. ALLERGENIC EXTRACTS OF VARIOUS ALLERGENS [Suspect]
     Indication: RHINITIS ALLERGIC

REACTIONS (1)
  - INJECTION SITE URTICARIA [None]
